FAERS Safety Report 24423220 (Version 1)
Quarter: 2024Q4

REPORT INFORMATION
  Report Type: Spontaneous
  Country: FR (occurrence: FR)
  Receive Date: 20241010
  Receipt Date: 20241010
  Transmission Date: 20250115
  Serious: Yes (Other)
  Sender: AMGEN
  Company Number: None

PATIENT
  Age: 80 Year
  Sex: Female
  Weight: 57.3 kg

DRUGS (11)
  1. NPLATE [Suspect]
     Active Substance: ROMIPLOSTIM
     Indication: Thrombocytopenia
     Dosage: C1
     Route: 058
     Dates: start: 20240723
  2. NPLATE [Suspect]
     Active Substance: ROMIPLOSTIM
     Dosage: C3
     Route: 058
     Dates: start: 20240902
  3. NPLATE [Suspect]
     Active Substance: ROMIPLOSTIM
     Dosage: C2
     Route: 058
     Dates: start: 20240817
  4. NPLATE [Suspect]
     Active Substance: ROMIPLOSTIM
     Dosage: C4
     Route: 058
     Dates: start: 20240910
  5. PRIVIGEN [Suspect]
     Active Substance: HUMAN IMMUNOGLOBULIN G
     Indication: Thrombocytopenia
     Dosage: C3
     Route: 040
     Dates: start: 20240903
  6. PRIVIGEN [Suspect]
     Active Substance: HUMAN IMMUNOGLOBULIN G
     Dosage: C4
     Route: 040
     Dates: start: 20240909
  7. PRIVIGEN [Suspect]
     Active Substance: HUMAN IMMUNOGLOBULIN G
     Dosage: C1
     Route: 040
     Dates: start: 20240725
  8. PRIVIGEN [Suspect]
     Active Substance: HUMAN IMMUNOGLOBULIN G
     Dosage: C2
     Route: 040
     Dates: start: 20240816
  9. CALCIFEDIOL [Concomitant]
     Active Substance: CALCIFEDIOL
     Dosage: UNK
     Route: 065
  10. NEBIVOLOL [Concomitant]
     Active Substance: NEBIVOLOL
     Dosage: UNK
     Route: 065
  11. BROMAZEPAM [Concomitant]
     Active Substance: BROMAZEPAM
     Dosage: UNK
     Route: 065

REACTIONS (1)
  - Alopecia [Not Recovered/Not Resolved]

NARRATIVE: CASE EVENT DATE: 20240701
